FAERS Safety Report 8236037-4 (Version None)
Quarter: 2012Q1

REPORT INFORMATION
  Report Type: 
  Country: None (occurrence: None)
  Receive Date: 20120326
  Receipt Date: 20120316
  Transmission Date: 20120608
  Serious: Yes (Hospitalization)
  Sender: FDA-Public Use
  Company Number: US-ASTRAZENECA-2010SE42253

PATIENT
  Age: 62 Year
  Sex: Female

DRUGS (68)
  1. APPLES/APPLE CIDER [Concomitant]
  2. BETADINE [Concomitant]
  3. EYTHROMYCIN BASE [Concomitant]
  4. LODINE [Concomitant]
  5. LEVAQUIN [Concomitant]
  6. TORADOL [Concomitant]
  7. ZIAC (GENERIC) [Concomitant]
  8. TYLENOL [Concomitant]
     Indication: ARTHRITIS
  9. CRESTOR [Suspect]
     Route: 048
  10. DEMEROL [Concomitant]
  11. PERCOCEL [Concomitant]
  12. PROPOLSIDE [Concomitant]
  13. PROVERA INJECTIONS [Concomitant]
  14. ULTHRAM [Concomitant]
  15. LEVSIN OIL [Concomitant]
  16. VITAMIN B6 [Concomitant]
  17. ALCOHOL [Concomitant]
  18. COZAAR [Concomitant]
  19. DAYPRO [Concomitant]
  20. HYDROCHLOROTHIAZIDE [Concomitant]
  21. NITROGLYCERIN [Concomitant]
  22. PREVACID [Concomitant]
  23. TALWIN [Concomitant]
  24. ACIDOPHILUS [Concomitant]
  25. CEREBREX [Concomitant]
  26. FLEXERIL [Concomitant]
     Dosage: Q/2 TABLET Q FOUR HOURS NOT EXCEED TO THREE TABLETS PER DAY
  27. LECITHIN [Concomitant]
  28. NEXIUM [Suspect]
     Route: 048
  29. IBUPROFEN (ADVIL) [Concomitant]
  30. COMPAZINE [Concomitant]
  31. PENICILLIN [Concomitant]
  32. ADVAIR DISKUS 100/50 [Concomitant]
  33. BENTYL [Concomitant]
     Dates: start: 19950801
  34. PATANOL [Concomitant]
  35. VITAMIN B-12 [Concomitant]
  36. ZIAC [Concomitant]
  37. CODEINE AND ALL CODEINE DERIVATIVES [Concomitant]
  38. DARVOCET [Concomitant]
  39. TAGAMENT [Concomitant]
  40. BENADRYL [Concomitant]
  41. PROVENTIL [Concomitant]
  42. TENORMIN [Suspect]
     Route: 065
  43. AMOXICILLIN [Concomitant]
  44. DOLOBID [Concomitant]
  45. FEDENE [Concomitant]
  46. IBUPROFEN AND ALL IB PRODUCTS [Concomitant]
  47. MOTRIN [Concomitant]
  48. ASCORBIC ACID [Concomitant]
  49. VITAMIN D [Concomitant]
  50. ZIAC [Concomitant]
     Dosage: 10-6.25 MG, ONE TABLET ONCE DAILY
     Route: 048
  51. CHLORHEXIDINE GLUCONATE [Concomitant]
     Dosage: 0.12 % RINSE, RINSE WITH 15 ML TWICE A DAY
  52. COQ10 [Concomitant]
  53. PRILOSEC [Suspect]
     Route: 048
  54. AMBESOL [Concomitant]
  55. AUGMENTIN '125' [Concomitant]
  56. DARVON [Concomitant]
  57. DIOVAN [Concomitant]
  58. PERCODAN-DEMI [Concomitant]
  59. ALAVERT [Concomitant]
  60. ZIAC [Concomitant]
     Dosage: 2.5-6.25 MG, ONE TABLET ONCE DAILY
     Route: 048
  61. ASCIPTIN [Concomitant]
  62. AXID [Concomitant]
  63. PEPCID [Concomitant]
  64. VASOTEC [Concomitant]
  65. ADVAIR DISKUS 100/50 [Concomitant]
     Dosage: 100/50 TWO PER DAY
  66. ALBUTEROL [Concomitant]
     Dosage: 0.083 % 2.5 MG, ALWAYS ONE PER DAY
  67. LIDOCAINE HCL [Concomitant]
  68. AZITHROMYCIN [Concomitant]

REACTIONS (7)
  - OSTEONECROSIS OF JAW [None]
  - GASTROOESOPHAGEAL REFLUX DISEASE [None]
  - NAUSEA [None]
  - JOINT INJURY [None]
  - MUSCLE SPASMS [None]
  - HEADACHE [None]
  - DRUG EFFECT DECREASED [None]
